FAERS Safety Report 16754480 (Version 1)
Quarter: 2019Q3

REPORT INFORMATION
  Report Type: Spontaneous
  Country: US (occurrence: US)
  Receive Date: 20190710
  Receipt Date: 20190710
  Transmission Date: 20191005
  Serious: Yes (Death)
  Sender: FDA-Public Use
  Company Number: None

PATIENT
  Age: 87 Year
  Sex: Female

DRUGS (1)
  1. ZOLEDRONIC ACID 5 MG/100 ML, 5 MG/100ML [Suspect]
     Active Substance: ZOLEDRONIC ACID
     Indication: SENILE OSTEOPOROSIS
     Dosage: ?          OTHER FREQUENCY:15 MINS EVERY YEAR;?
     Route: 042

REACTIONS (1)
  - Death [None]
